FAERS Safety Report 15680412 (Version 1)
Quarter: 2018Q4

REPORT INFORMATION
  Report Type: Spontaneous
  Country: US (occurrence: US)
  Receive Date: 20181203
  Receipt Date: 20181203
  Transmission Date: 20190205
  Serious: Yes (Other)
  Sender: FDA-Public Use
  Company Number: US-009507513-1811USA011884

PATIENT
  Sex: Female
  Weight: 69.39 kg

DRUGS (2)
  1. NEXPLANON [Suspect]
     Active Substance: ETONOGESTREL
     Indication: ENDOMETRIOSIS
  2. NEXPLANON [Suspect]
     Active Substance: ETONOGESTREL
     Indication: ADENOMYOSIS
     Dosage: 1 IMPLANT, FREQUENCY: EVERY 3 YEARS
     Route: 059
     Dates: start: 20181128, end: 20181128

REACTIONS (3)
  - Product use in unapproved indication [Unknown]
  - Complication associated with device [Recovered/Resolved]
  - Device dislocation [Recovered/Resolved]

NARRATIVE: CASE EVENT DATE: 20181128
